FAERS Safety Report 8757883 (Version 2)
Quarter: 2013Q4

REPORT INFORMATION
  Report Type: Spontaneous
  Country: US (occurrence: US)
  Receive Date: 20120828
  Receipt Date: 20131101
  Transmission Date: 20140711
  Serious: No
  Sender: FDA-Public Use
  Company Number: US-009507513-1208USA000985

PATIENT
  Sex: Female

DRUGS (3)
  1. MIRALAX [Suspect]
     Indication: PRODUCT USED FOR UNKNOWN INDICATION
     Dosage: 17 G, QID
     Route: 048
     Dates: start: 20120712
  2. MIRALAX [Suspect]
     Indication: MEDICAL OBSERVATION
     Dosage: 17 G, BID
     Route: 048
     Dates: start: 20120713
  3. MIRALAX [Suspect]
     Dosage: 17 G, QD
     Route: 048
     Dates: start: 20120714, end: 20120716

REACTIONS (2)
  - Bowel movement irregularity [Not Recovered/Not Resolved]
  - Overdose [Unknown]
